FAERS Safety Report 8739544 (Version 2)
Quarter: 2012Q4

REPORT INFORMATION
  Report Type: 
  Country: GB (occurrence: GB)
  Receive Date: 20120823
  Receipt Date: 20120911
  Transmission Date: 20130627
  Serious: Yes (Death, Other)
  Sender: FDA-Public Use
  Company Number: PHHY2012GB072135

PATIENT
  Age: 80 Year
  Sex: Female
  Weight: 130 kg

DRUGS (10)
  1. WARFARIN [Suspect]
     Dosage: 1 mg, UNK
     Dates: start: 20110721
  2. CLINDAMYCIN [Interacting]
     Indication: CELLULITIS
     Dosage: 450 mg, QID
     Route: 048
     Dates: start: 20111017, end: 20111025
  3. ADALAT LA [Concomitant]
     Dosage: 1 DF, QD
  4. ATENOLOL [Concomitant]
     Dosage: 50 mg, QD
  5. BENDROFLUMETHIAZIDE [Concomitant]
     Dosage: 2.5 mg, QD
  6. CAPTOPRIL [Concomitant]
     Dosage: 50 mg, QD
  7. CODEINE [Concomitant]
     Indication: PAIN
     Dosage: 15 mg, PRN
  8. DOXAZOSIN [Concomitant]
     Dosage: 1 mg, QD
  9. PARACETAMOL [Concomitant]
     Indication: PAIN
     Dosage: 500 mg, PRN
  10. PHENOXYMETHYLPENICILLIN [Concomitant]
     Dosage: 250 mg, BID

REACTIONS (3)
  - Retroperitoneal haemorrhage [Fatal]
  - Coagulopathy [Fatal]
  - Drug interaction [Unknown]
